FAERS Safety Report 9800189 (Version 2)
Quarter: 2014Q2

REPORT INFORMATION
  Report Type: Spontaneous
  Country: US (occurrence: US)
  Receive Date: 20140106
  Receipt Date: 20140530
  Transmission Date: 20141212
  Serious: No
  Sender: FDA-Public Use
  Company Number: US-009507513-1312USA010568

PATIENT
  Sex: Male
  Weight: 102.4 kg

DRUGS (2)
  1. MIRALAX [Suspect]
     Indication: BOWEL MOVEMENT IRREGULARITY
     Dosage: UNK, QD
     Route: 048
  2. MIRALAX [Suspect]
     Dosage: UNK, UNKNOWN
     Route: 048

REACTIONS (1)
  - Cough [Unknown]
